FAERS Safety Report 8027427-3 (Version None)
Quarter: 2012Q1

REPORT INFORMATION
  Report Type: 
  Country: None (occurrence: None)
  Receive Date: 20120106
  Receipt Date: 20111228
  Transmission Date: 20120608
  Serious: Yes (Death)
  Sender: FDA-Public Use
  Company Number: US-CELGENEUS-163-21660-11102350

PATIENT
  Sex: Female

DRUGS (2)
  1. ABRAXANE [Suspect]
     Route: 041
  2. PAIN MEDICATION [Concomitant]
     Route: 065

REACTIONS (3)
  - CARDIAC ARREST [None]
  - URINARY TRACT INFECTION [None]
  - NEUTROPENIC SEPSIS [None]
